FAERS Safety Report 15379137 (Version 1)
Quarter: 2018Q3

REPORT INFORMATION
  Report Type: Spontaneous
  Country: US (occurrence: US)
  Receive Date: 20180913
  Receipt Date: 20180913
  Transmission Date: 20181010
  Serious: No
  Sender: FDA-Public Use
  Company Number: US-ASTELLAS-2017US035275

PATIENT
  Sex: Female

DRUGS (1)
  1. XTANDI [Suspect]
     Active Substance: ENZALUTAMIDE
     Indication: BREAST CANCER METASTATIC
     Route: 048
     Dates: start: 20170901

REACTIONS (1)
  - Off label use [Unknown]
